FAERS Safety Report 8023301-7 (Version None)
Quarter: 2012Q1

REPORT INFORMATION
  Report Type: 
  Country: None (occurrence: None)
  Receive Date: 20120104
  Receipt Date: 20111227
  Transmission Date: 20120608
  Serious: Yes (Hospitalization, Disabling)
  Sender: FDA-Public Use
  Company Number: US-BAYER-2011-046168

PATIENT
  Age: 30 Year
  Sex: Female
  Weight: 82 kg

DRUGS (4)
  1. YAZ [Suspect]
     Indication: ACNE
  2. YAZ [Suspect]
  3. YAZ [Suspect]
     Indication: PREMENSTRUAL SYNDROME
  4. ORTHO TRI-CYCLEN [Concomitant]
     Dosage: UNK UNK, QD
     Route: 048

REACTIONS (4)
  - CHOLECYSTITIS ACUTE [None]
  - PAIN [None]
  - DEFORMITY [None]
  - GALLBLADDER DISORDER [None]
